FAERS Safety Report 8234122-4 (Version None)
Quarter: 2012Q1

REPORT INFORMATION
  Report Type: 
  Country: None (occurrence: None)
  Receive Date: 20120326
  Receipt Date: 20120326
  Transmission Date: 20120608
  Serious: No
  Sender: FDA-Public Use
  Company Number: None

PATIENT
  Age: 34 Year
  Sex: Female
  Weight: 63.502 kg

DRUGS (1)
  1. IBUPROFEN [Suspect]

REACTIONS (3)
  - PRODUCT PHYSICAL ISSUE [None]
  - PRODUCT SUBSTITUTION ISSUE [None]
  - ABDOMINAL PAIN UPPER [None]
